FAERS Safety Report 25270945 (Version 1)
Quarter: 2025Q2

REPORT INFORMATION
  Report Type: Spontaneous
  Country: RU (occurrence: RU)
  Receive Date: 20250506
  Receipt Date: 20250506
  Transmission Date: 20250717
  Serious: Yes (Other)
  Sender: CHEPLAPHARM
  Company Number: RU-ASTRAZENECA-202504RUS023039RU

PATIENT
  Age: 13 Year

DRUGS (2)
  1. QUETIAPINE [Suspect]
     Active Substance: QUETIAPINE
     Indication: Product used for unknown indication
  2. CHLORPROTHIXENE [Concomitant]
     Active Substance: CHLORPROTHIXENE

REACTIONS (5)
  - Muscle spasms [Recovered/Resolved]
  - Facial pain [Recovered/Resolved]
  - Piloerection [Recovered/Resolved]
  - Neuroleptic malignant syndrome [Unknown]
  - Off label use [Not Recovered/Not Resolved]
